FAERS Safety Report 9207679 (Version 1)
Quarter: 2013Q1

REPORT INFORMATION
  Report Type: Spontaneous
  Country: US (occurrence: None)
  Receive Date: 20120817
  Receipt Date: 20120817
  Transmission Date: 20140127
  Serious: Yes (Other)
  Sender: FDA-Public Use
  Company Number: ADR-2012-00669

PATIENT
  Sex: Male

DRUGS (1)
  1. BACLOFEN [Suspect]
     Route: 037
     Dates: start: 20120322

REACTIONS (1)
  - Muscle spasticity [None]
